FAERS Safety Report 17413236 (Version 1)
Quarter: 2020Q1

REPORT INFORMATION
  Report Type: Spontaneous
  Country: US (occurrence: US)
  Receive Date: 20200213
  Receipt Date: 20200213
  Transmission Date: 20200409
  Serious: Yes (Other)
  Sender: FDA-Public Use
  Company Number: US-ROCHE-2541713

PATIENT
  Age: 75 Year
  Sex: Female
  Weight: 78.09 kg

DRUGS (2)
  1. ZITHROMAX [Concomitant]
     Active Substance: AZITHROMYCIN DIHYDRATE
  2. ACTEMRA [Suspect]
     Active Substance: TOCILIZUMAB
     Indication: RHEUMATOID ARTHRITIS
     Route: 042
     Dates: start: 20190911

REACTIONS (17)
  - Haemorrhoidal haemorrhage [Recovered/Resolved]
  - Productive cough [Not Recovered/Not Resolved]
  - Anaemia [Unknown]
  - Aphthous ulcer [Not Recovered/Not Resolved]
  - Body height decreased [Unknown]
  - Platelet count increased [Unknown]
  - Enteritis [Unknown]
  - Blood urine [Unknown]
  - Pallor [Unknown]
  - Scar [Unknown]
  - Diarrhoea [Recovered/Resolved]
  - Fall [Unknown]
  - Ulcer haemorrhage [Not Recovered/Not Resolved]
  - Haemoglobin decreased [Unknown]
  - Fear of falling [Recovered/Resolved]
  - Herpes virus infection [Unknown]
  - Gait disturbance [Recovered/Resolved]

NARRATIVE: CASE EVENT DATE: 20191122
